FAERS Safety Report 7065772-9 (Version None)
Quarter: 2010Q4

REPORT INFORMATION
  Report Type: 
  Country: None (occurrence: None)
  Receive Date: 20101027
  Receipt Date: 20101021
  Transmission Date: 20110411
  Serious: Yes (Other)
  Sender: FDA-Public Use
  Company Number: IT-JNJCH-2008001866

PATIENT
  Age: 24 Month
  Sex: Female

DRUGS (1)
  1. DEXTROMETHORPHAN [Suspect]
     Indication: ACCIDENTAL EXPOSURE
     Dosage: TEXT:UNSPECIFIED
     Route: 048

REACTIONS (3)
  - ACCIDENTAL EXPOSURE [None]
  - ATAXIA [None]
  - CONVULSION [None]
